FAERS Safety Report 4380829-9 (Version None)
Quarter: 2004Q2

REPORT INFORMATION
  Report Type: 
  Country: None (occurrence: None)
  Receive Date: 20040616
  Receipt Date: 20040603
  Transmission Date: 20050107
  Serious: Yes (Hospitalization)
  Sender: FDA-Public Use
  Company Number: 2004037210

PATIENT
  Age: 11 Month
  Sex: Female

DRUGS (1)
  1. VIAGRA [Suspect]
     Indication: ILL-DEFINED DISORDER
     Dosage: ORAL
     Route: 048
     Dates: start: 20040602, end: 20040602

REACTIONS (2)
  - ACCIDENTAL EXPOSURE [None]
  - BLOOD CREATINE PHOSPHOKINASE INCREASED [None]
